FAERS Safety Report 10076460 (Version 1)
Quarter: 2014Q2

REPORT INFORMATION
  Report Type: Spontaneous
  Country: US (occurrence: US)
  Receive Date: 20140414
  Receipt Date: 20140414
  Transmission Date: 20141212
  Serious: Yes (Death, Hospitalization)
  Sender: FDA-Public Use
  Company Number: US-JNJFOC-20140408850

PATIENT
  Sex: Male

DRUGS (2)
  1. IMBRUVICA [Suspect]
     Indication: CHRONIC LYMPHOCYTIC LEUKAEMIA
     Route: 048
     Dates: start: 20140314, end: 201403
  2. VALTREX [Concomitant]
     Route: 048

REACTIONS (1)
  - Intestinal perforation [Fatal]
